FAERS Safety Report 6403331-9 (Version None)
Quarter: 2009Q4

REPORT INFORMATION
  Report Type: 
  Country: None (occurrence: None)
  Receive Date: 20091016
  Receipt Date: 20091007
  Transmission Date: 20100525
  Serious: No
  Sender: FDA-Public Use
  Company Number: US-B.I. PHARMACEUTICALS,INC./RIDGEFIELD-2009-BP-11050BP

PATIENT
  Sex: Female

DRUGS (8)
  1. SPIRIVA [Suspect]
     Indication: CHRONIC OBSTRUCTIVE PULMONARY DISEASE
     Dosage: 18 MCG
     Route: 055
     Dates: start: 20080101
  2. OXAPROZIN [Concomitant]
     Indication: ARTHRITIS
  3. METFORMIN HYDROCHLORIDE [Concomitant]
     Indication: DIABETES MELLITUS
  4. LEVOTHYROXINE SODIUM [Concomitant]
     Indication: HYPOTHYROIDISM
  5. MELOXICAM [Concomitant]
     Indication: ARTHRITIS
  6. CETIRIZINE HCL [Concomitant]
     Indication: MULTIPLE ALLERGIES
  7. SIMVASTATIN [Concomitant]
  8. MAGNESIUM [Concomitant]
     Indication: MUSCLE SPASMS

REACTIONS (1)
  - DRUG INEFFECTIVE [None]
